FAERS Safety Report 11603948 (Version 1)
Quarter: 2015Q4

REPORT INFORMATION
  Report Type: Report from Study
  Country: CL (occurrence: CL)
  Receive Date: 20151007
  Receipt Date: 20151007
  Transmission Date: 20160304
  Serious: Yes (Other)
  Sender: FDA-Public Use
  Company Number: CL-ROCHE-1440433

PATIENT
  Age: 81 Year
  Sex: Female
  Weight: 41 kg

DRUGS (2)
  1. XELODA [Suspect]
     Active Substance: CAPECITABINE
     Indication: COLON CANCER
     Dosage: 14 DAYS PER CYCLE
     Route: 048
     Dates: start: 20140514, end: 20140926
  2. XELODA [Suspect]
     Active Substance: CAPECITABINE
     Dosage: THERAPY RESTARTED WITH REDUCTION IN DOSE
     Route: 048
     Dates: start: 20141015

REACTIONS (19)
  - Immune system disorder [Unknown]
  - Diarrhoea [Not Recovered/Not Resolved]
  - Head discomfort [Recovered/Resolved]
  - Abdominal pain upper [Unknown]
  - Mood altered [Not Recovered/Not Resolved]
  - Malaise [Not Recovered/Not Resolved]
  - Frequent bowel movements [Not Recovered/Not Resolved]
  - Chills [Recovered/Resolved]
  - Pneumonitis [Recovered/Resolved]
  - Pyrexia [Recovered/Resolved]
  - Hypotension [Recovered/Resolved]
  - Nausea [Recovered/Resolved]
  - Abdominal distension [Not Recovered/Not Resolved]
  - Malaise [Not Recovered/Not Resolved]
  - Flatulence [Recovered/Resolved]
  - Fatigue [Unknown]
  - Abdominal pain upper [Not Recovered/Not Resolved]
  - Pain [Not Recovered/Not Resolved]
  - Parosmia [Not Recovered/Not Resolved]

NARRATIVE: CASE EVENT DATE: 20140619
